FAERS Safety Report 4288336-9 (Version None)
Quarter: 2004Q1

REPORT INFORMATION
  Report Type: 
  Country: None (occurrence: None)
  Receive Date: 20040209
  Receipt Date: 20030915
  Transmission Date: 20041129
  Serious: No
  Sender: FDA-Public Use
  Company Number: US-GLAXOSMITHKLINE-A0425913A

PATIENT
  Age: 44 Year
  Sex: Male

DRUGS (2)
  1. PAXIL [Suspect]
     Dosage: 40MG PER DAY
     Route: 048
     Dates: start: 20030103, end: 20030901
  2. NONE [Concomitant]

REACTIONS (7)
  - DECREASED APPETITE [None]
  - DIZZINESS [None]
  - DRUG WITHDRAWAL SYNDROME [None]
  - DYSPEPSIA [None]
  - INSOMNIA [None]
  - NAUSEA [None]
  - TINNITUS [None]
